FAERS Safety Report 16824262 (Version 1)
Quarter: 2019Q3

REPORT INFORMATION
  Report Type: Spontaneous
  Country: GB (occurrence: GB)
  Receive Date: 20190918
  Receipt Date: 20190918
  Transmission Date: 20191005
  Serious: Yes (Hospitalization, Other)
  Sender: FDA-Public Use
  Company Number: GB-GILEAD-2019-0427887

PATIENT
  Age: 33 Year
  Sex: Female

DRUGS (8)
  1. EPIVIR [Suspect]
     Active Substance: LAMIVUDINE
     Indication: HIV TEST POSITIVE
     Route: 065
  2. FUZEON [Suspect]
     Active Substance: ENFUVIRTIDE
     Indication: HIV TEST POSITIVE
     Route: 065
  3. VIRACEPT [Suspect]
     Active Substance: NELFINAVIR MESYLATE
     Indication: HIV TEST POSITIVE
     Route: 065
  4. NORVIR [Suspect]
     Active Substance: RITONAVIR
     Indication: HIV TEST POSITIVE
     Route: 065
  5. COMBIVIR [Suspect]
     Active Substance: LAMIVUDINE\ZIDOVUDINE
     Indication: HIV TEST POSITIVE
     Route: 065
  6. VIRAMUNE [Suspect]
     Active Substance: NEVIRAPINE
     Indication: HIV TEST POSITIVE
     Route: 065
  7. LEXIVA [Suspect]
     Active Substance: FOSAMPRENAVIR CALCIUM
     Indication: HIV TEST POSITIVE
     Route: 065
  8. VIREAD [Suspect]
     Active Substance: TENOFOVIR DISOPROXIL FUMARATE
     Indication: HIV TEST POSITIVE
     Dosage: 300 MG
     Route: 065

REACTIONS (5)
  - Multiple-drug resistance [Unknown]
  - Caesarean section [Unknown]
  - Vomiting [Unknown]
  - Nausea [Unknown]
  - Maternal exposure during pregnancy [Recovered/Resolved]
